FAERS Safety Report 11909924 (Version 1)
Quarter: 2016Q1

REPORT INFORMATION
  Report Type: Spontaneous
  Country: US (occurrence: None)
  Receive Date: 20160111
  Receipt Date: 20160111
  Transmission Date: 20160526
  Serious: Yes (Hospitalization)
  Sender: FDA-Public Use
  Company Number: None

PATIENT
  Age: 73 Year
  Sex: Male

DRUGS (8)
  1. ROPINIROLE. [Concomitant]
     Active Substance: ROPINIROLE
  2. CALCIUM [Concomitant]
     Active Substance: CALCIUM
  3. ENBREL [Suspect]
     Active Substance: ETANERCEPT
     Indication: RHEUMATOID ARTHRITIS
     Route: 058
     Dates: start: 20150729
  4. FOLIC ACID. [Concomitant]
     Active Substance: FOLIC ACID
  5. FISH OIL [Concomitant]
     Active Substance: FISH OIL
  6. METHOTREXATE [Concomitant]
     Active Substance: METHOTREXATE
  7. VITAMIN B COMPLEX [Concomitant]
     Active Substance: CYANOCOBALAMIN\DEXPANTHENOL\NIACINAMIDE\PYRIDOXINE HYDROCHLORIDE\RIBOFLAVIN 5^-PHOSPHATE SODIUM\THIAMINE HYDROCHLORIDE\VITAMIN B COMPLEX
  8. MULTI VIT. [Concomitant]

REACTIONS (3)
  - Injection site erythema [None]
  - Local swelling [None]
  - Pulmonary fibrosis [None]
